FAERS Safety Report 20634438 (Version 1)
Quarter: 2022Q1

REPORT INFORMATION
  Report Type: Spontaneous
  Country: FR (occurrence: FR)
  Receive Date: 20220325
  Receipt Date: 20220325
  Transmission Date: 20220423
  Serious: Yes (Hospitalization, Other)
  Sender: FDA-Public Use
  Company Number: FR-AFSSAPS-RN20220802

PATIENT
  Age: 85 Year
  Sex: Female
  Weight: 68 kg

DRUGS (3)
  1. AMOXICILLIN [Suspect]
     Active Substance: AMOXICILLIN
     Indication: Endocarditis
     Dosage: 2 GRAM, 3 TIMES A DAY
     Route: 048
     Dates: start: 20211208, end: 20220128
  2. INNOHEP [Suspect]
     Active Substance: TINZAPARIN SODIUM
     Indication: Cardiovascular disorder
     Dosage: UNK
     Route: 065
     Dates: start: 20211217
  3. RIFAMPIN [Suspect]
     Active Substance: RIFAMPIN
     Indication: Endocarditis
     Dosage: 900 MILLIGRAM, ONCE A DAY
     Route: 048
     Dates: start: 20211208, end: 20220128

REACTIONS (1)
  - Drug reaction with eosinophilia and systemic symptoms [Recovered/Resolved]

NARRATIVE: CASE EVENT DATE: 20220112
